FAERS Safety Report 7367294-4 (Version None)
Quarter: 2011Q1

REPORT INFORMATION
  Report Type: 
  Country: None (occurrence: None)
  Receive Date: 20110322
  Receipt Date: 20110318
  Transmission Date: 20110831
  Serious: Yes (Other)
  Sender: FDA-Public Use
  Company Number: US-MERCK-1102USA00914

PATIENT
  Age: 65 Year
  Sex: Male

DRUGS (2)
  1. COSOPT [Suspect]
     Indication: GLAUCOMA
     Route: 047
     Dates: start: 20100901
  2. COSOPT [Suspect]
     Indication: INFECTION
     Route: 047
     Dates: start: 20100901

REACTIONS (2)
  - CONVULSION [None]
  - DECREASED APPETITE [None]
